FAERS Safety Report 14355586 (Version 1)
Quarter: 2018Q1

REPORT INFORMATION
  Report Type: Spontaneous
  Country: US (occurrence: US)
  Receive Date: 20180104
  Receipt Date: 20180104
  Transmission Date: 20180509
  Serious: Yes (Hospitalization)
  Sender: FDA-Public Use
  Company Number: None

PATIENT
  Age: 19 Year
  Sex: Female
  Weight: 40.5 kg

DRUGS (5)
  1. PREDNISONE. [Concomitant]
     Active Substance: PREDNISONE
  2. MESALAMINE DELAYED-RELEASE 1.2 G TABLETS [Suspect]
     Active Substance: MESALAMINE
     Indication: COLITIS ULCERATIVE
     Dosage: ?          OTHER STRENGTH:TABLET;QUANTITY:120 TABLET(S);?
     Route: 048
  3. MULTIVITAMIN GUMMIES [Concomitant]
  4. VITAMIN D [Concomitant]
     Active Substance: CHOLECALCIFEROL
  5. TURMERIC + MEADOWSWEET + GINGER HERBAL TEA [Concomitant]

REACTIONS (3)
  - Condition aggravated [None]
  - Colitis ulcerative [None]
  - Medication residue present [None]

NARRATIVE: CASE EVENT DATE: 20171025
